FAERS Safety Report 10227919 (Version 1)
Quarter: 2014Q2

REPORT INFORMATION
  Report Type: Spontaneous
  Country: US (occurrence: None)
  Receive Date: 20140609
  Receipt Date: 20140609
  Transmission Date: 20141212
  Serious: No
  Sender: FDA-Public Use
  Company Number: None

PATIENT
  Age: 50 Year
  Sex: Female
  Weight: 55.79 kg

DRUGS (1)
  1. VENLAFAXINE [Suspect]
     Indication: DEPRESSION
     Dosage: ONE CAPSULE ONCE DAILY TAKEN BY MOUTH
     Route: 048
     Dates: start: 20140124, end: 20140129

REACTIONS (2)
  - Dizziness [None]
  - Blood pressure decreased [None]
